FAERS Safety Report 18961988 (Version 2)
Quarter: 2021Q1

REPORT INFORMATION
  Report Type: Report from Study
  Country: CA (occurrence: CA)
  Receive Date: 20210302
  Receipt Date: 20210312
  Transmission Date: 20210420
  Serious: Yes (Death, Hospitalization)
  Sender: FDA-Public Use
  Company Number: CA-BAUSCH-BL-2021-006758

PATIENT
  Age: 93 Year
  Sex: Male

DRUGS (2)
  1. SILIQ [Suspect]
     Active Substance: BRODALUMAB
     Dosage: 210MG/1.5 ML
     Route: 058
     Dates: start: 202101, end: 202102
  2. SILIQ [Suspect]
     Active Substance: BRODALUMAB
     Indication: PSORIASIS
     Dosage: 210MG/1.5 ML, WEEK 0,1, 2
     Route: 058
     Dates: start: 20201204, end: 202012

REACTIONS (2)
  - Intentional product use issue [Unknown]
  - Renal failure [Fatal]

NARRATIVE: CASE EVENT DATE: 202102
